FAERS Safety Report 6127152-X (Version None)
Quarter: 2009Q1

REPORT INFORMATION
  Report Type: 
  Country: None (occurrence: None)
  Receive Date: 20090318
  Receipt Date: 20090305
  Transmission Date: 20090719
  Serious: Yes (Hospitalization)
  Sender: FDA-Public Use
  Company Number: 1000005134

PATIENT
  Age: 89 Year
  Sex: Female

DRUGS (2)
  1. ESCITALOPRAM [Suspect]
  2. TETRAZEPAM [Suspect]

REACTIONS (1)
  - ACUTE GENERALISED EXANTHEMATOUS PUSTULOSIS [None]
